FAERS Safety Report 6543896-X (Version None)
Quarter: 2010Q1

REPORT INFORMATION
  Report Type: 
  Country: None (occurrence: None)
  Receive Date: 20100119
  Receipt Date: 20100119
  Transmission Date: 20100710
  Serious: Yes (Other)
  Sender: FDA-Public Use
  Company Number: None

PATIENT
  Age: 47 Year
  Sex: Female
  Weight: 81.6475 kg

DRUGS (2)
  1. TYLENOL (CAPLET) [Suspect]
     Indication: BURSITIS
     Dosage: 2 CAPLETS AS NEEDED PO
     Route: 048
     Dates: start: 20091226, end: 20100117
  2. TYLENOL (CAPLET) [Suspect]
     Indication: PAIN
     Dosage: 2 CAPLETS AS NEEDED PO
     Route: 048
     Dates: start: 20091226, end: 20100117

REACTIONS (7)
  - ABDOMINAL DISCOMFORT [None]
  - ABDOMINAL PAIN UPPER [None]
  - DIARRHOEA [None]
  - LISTLESS [None]
  - MUSCULAR WEAKNESS [None]
  - PRODUCT QUALITY ISSUE [None]
  - VOMITING [None]
